FAERS Safety Report 6300173-X (Version None)
Quarter: 2009Q3

REPORT INFORMATION
  Report Type: 
  Country: None (occurrence: None)
  Receive Date: 20090806
  Receipt Date: 20090728
  Transmission Date: 20100115
  Serious: Yes (Other)
  Sender: FDA-Public Use
  Company Number: US-BAXTER-2009BH011729

PATIENT
  Age: 71 Year
  Sex: Male

DRUGS (12)
  1. DIANEAL [Suspect]
     Indication: PERITONEAL DIALYSIS
     Route: 033
     Dates: start: 20090101, end: 20090701
  2. BENEFIBER [Concomitant]
     Indication: CONSTIPATION
     Route: 048
  3. COLACE [Concomitant]
     Indication: CONSTIPATION
     Route: 048
  4. LACTULOSE [Concomitant]
     Indication: CONSTIPATION
     Route: 048
  5. MULTI-VITAMINS [Concomitant]
     Indication: DRUG USE FOR UNKNOWN INDICATION
     Route: 048
  6. ATORVASTATIN [Concomitant]
     Indication: DRUG USE FOR UNKNOWN INDICATION
     Route: 048
  7. MIRALAX [Concomitant]
     Indication: CONSTIPATION
     Route: 048
  8. PHOSLO [Concomitant]
     Indication: DRUG USE FOR UNKNOWN INDICATION
     Route: 048
  9. SENSIPAR [Concomitant]
     Indication: DRUG USE FOR UNKNOWN INDICATION
     Route: 048
  10. TYLENOL (CAPLET) [Concomitant]
     Indication: DRUG USE FOR UNKNOWN INDICATION
     Route: 048
  11. VICODIN [Concomitant]
     Indication: DRUG USE FOR UNKNOWN INDICATION
     Route: 048
  12. ZEMPLAR [Concomitant]
     Indication: DRUG USE FOR UNKNOWN INDICATION
     Route: 048

REACTIONS (1)
  - CONDITION AGGRAVATED [None]
